FAERS Safety Report 18625017 (Version 2)
Quarter: 2020Q4

REPORT INFORMATION
  Report Type: Spontaneous
  Country: AR (occurrence: AR)
  Receive Date: 20201216
  Receipt Date: 20201226
  Transmission Date: 20210114
  Serious: Yes (Hospitalization)
  Sender: FDA-Public Use
  Company Number: NVSC2020AR332558

PATIENT
  Sex: Male

DRUGS (2)
  1. TACROLIMUS SANDOZ [Suspect]
     Active Substance: TACROLIMUS
     Indication: RENAL TRANSPLANT
     Dosage: 4 MG, QD (APPROXIMATELY 6 MONTHS AGO)
     Route: 065
  2. CERTICAN [Suspect]
     Active Substance: EVEROLIMUS
     Indication: PRODUCT USED FOR UNKNOWN INDICATION
     Dosage: 0.75 MG
     Route: 065

REACTIONS (10)
  - Chest pain [Unknown]
  - Visual impairment [Unknown]
  - Renal failure [Unknown]
  - Contusion [Recovering/Resolving]
  - Vein rupture [Recovering/Resolving]
  - Coronary artery disease [Unknown]
  - Euphoric mood [Unknown]
  - Venous occlusion [Unknown]
  - Pneumonia [Recovered/Resolved]
  - Pain [Unknown]
